FAERS Safety Report 6035589-2 (Version None)
Quarter: 2009Q1

REPORT INFORMATION
  Report Type: 
  Country: None (occurrence: None)
  Receive Date: 20090113
  Receipt Date: 20081223
  Transmission Date: 20090719
  Serious: Yes (Other)
  Sender: FDA-Public Use
  Company Number: SE-BAYER-200910531GPV

PATIENT
  Age: 38 Year
  Sex: Female

DRUGS (1)
  1. NORPLANT [Suspect]
     Indication: DRUG USE FOR UNKNOWN INDICATION

REACTIONS (4)
  - COMPLICATION OF DEVICE REMOVAL [None]
  - IMPLANT SITE NERVE INJURY [None]
  - PAIN IN EXTREMITY [None]
  - SENSORY LOSS [None]
